FAERS Safety Report 9326285 (Version 2)
Quarter: 2013Q2

REPORT INFORMATION
  Report Type: Report from Study
  Country: AR (occurrence: AR)
  Receive Date: 20130604
  Receipt Date: 20130619
  Transmission Date: 20140414
  Serious: Yes (Other)
  Sender: FDA-Public Use
  Company Number: PHHY2013AR056443

PATIENT
  Sex: Female

DRUGS (1)
  1. DIOVAN D [Suspect]
     Indication: HYPERTENSION
     Dosage: 1 DF (160 MG VALS + 25 MG HCT), DAILY
     Route: 048

REACTIONS (3)
  - Senile dementia [Not Recovered/Not Resolved]
  - Mood altered [Unknown]
  - Hypertension [Recovered/Resolved]
